FAERS Safety Report 16376145 (Version 2)
Quarter: 2019Q4

REPORT INFORMATION
  Report Type: Spontaneous
  Country: US (occurrence: US)
  Receive Date: 20190531
  Receipt Date: 20191124
  Transmission Date: 20200122
  Serious: No
  Sender: FDA-Public Use
  Company Number: US-BIOGEN-2019BI00697766

PATIENT
  Sex: Female

DRUGS (1)
  1. TECFIDERA [Suspect]
     Active Substance: DIMETHYL FUMARATE
     Indication: MULTIPLE SCLEROSIS
     Dosage: TAKE 1 CAPSULE BY MOUTH TWICE A DAY
     Route: 050
     Dates: start: 20171117

REACTIONS (8)
  - Anosmia [Not Recovered/Not Resolved]
  - Flushing [Unknown]
  - Hot flush [Not Recovered/Not Resolved]
  - Sinus disorder [Not Recovered/Not Resolved]
  - Influenza [Recovered/Resolved]
  - White blood cell count decreased [Not Recovered/Not Resolved]
  - Ageusia [Not Recovered/Not Resolved]
  - Memory impairment [Not Recovered/Not Resolved]
